FAERS Safety Report 15741286 (Version 9)
Quarter: 2020Q1

REPORT INFORMATION
  Report Type: Report from Study
  Country: DE (occurrence: DE)
  Receive Date: 20181219
  Receipt Date: 20200324
  Transmission Date: 20200409
  Serious: Yes (Hospitalization)
  Sender: FDA-Public Use
  Company Number: DE-INCYTE CORPORATION-2018IN009965

PATIENT

DRUGS (25)
  1. L-THYROXIN [Concomitant]
     Active Substance: LEVOTHYROXINE SODIUM
     Dosage: 150 UG, QOD (EVERY SECOND DAY) (1-0-0)
     Route: 048
     Dates: end: 20181201
  2. OMEPRAZOL [OMEPRAZOLE] [Concomitant]
     Active Substance: OMEPRAZOLE
     Indication: GASTROOESOPHAGEAL REFLUX DISEASE
     Dosage: 40 MG, QD (0-0-1)
     Route: 048
  3. ASPIRIN. [Concomitant]
     Active Substance: ASPIRIN
     Indication: POLYCYTHAEMIA VERA
     Dosage: 100 MG, QOD (1-0-0) (EVERY SECOND DAY)
     Route: 058
     Dates: start: 20180508
  4. CERTOPARIN SODIUM [Concomitant]
     Active Substance: CERTOPARIN SODIUM
     Indication: THROMBOSIS PROPHYLAXIS
     Dosage: 8000 IU, QD (1-0-0)
     Route: 058
     Dates: start: 20181217, end: 20181217
  5. ORTOTON [METHOCARBAMOL] [Concomitant]
     Indication: PAIN
     Dosage: 750 MG, 0-0-0-2
     Route: 048
     Dates: start: 20200131
  6. L-THYROXIN [Concomitant]
     Active Substance: LEVOTHYROXINE SODIUM
     Indication: HYPOTHYROIDISM
     Dosage: 125 UG, QOD (EVERY SECOND DAY) (1-0-0)
     Route: 048
     Dates: end: 201812
  7. MOXONIDINE [Concomitant]
     Active Substance: MOXONIDINE
     Dosage: 0.3 MG, QD (1-0-1)
     Route: 048
     Dates: start: 201812
  8. NOVAMINSULFON [Concomitant]
     Active Substance: METAMIZOLE
     Dosage: 80 DRP, QD
     Route: 048
     Dates: start: 20200131
  9. LYRICA [Concomitant]
     Active Substance: PREGABALIN
     Indication: PARAESTHESIA
     Dosage: 75 MG, QHS
     Route: 048
     Dates: start: 20180605, end: 20180703
  10. TELMISARTAN. [Concomitant]
     Active Substance: TELMISARTAN
     Indication: HYPERTENSION
     Dosage: 80 MG, QD (0-0-1)
     Route: 048
     Dates: end: 20180901
  11. L-THYROXIN [Concomitant]
     Active Substance: LEVOTHYROXINE SODIUM
     Dosage: 125 UG, QD
     Route: 048
     Dates: start: 201812, end: 202001
  12. NOVAMINSULFON [Concomitant]
     Active Substance: METAMIZOLE
     Indication: PAIN
     Dosage: 40 DRP, PRN
     Route: 048
     Dates: start: 20190823, end: 202001
  13. NITROLINGUAL [Concomitant]
     Active Substance: NITROGLYCERIN
     Indication: HYPERTENSION
     Dosage: 0.4 MG, PRN
     Route: 048
     Dates: start: 20181002
  14. JAKAVI [Suspect]
     Active Substance: RUXOLITINIB
     Indication: POLYCYTHAEMIA VERA
     Dosage: 10 MG, BID
     Route: 048
     Dates: start: 20180327
  15. CLOBETASOL [Concomitant]
     Active Substance: CLOBETASOL
     Indication: LICHEN SCLEROSUS
     Dosage: 0.44 MG, BID ( 1-0-1)
     Route: 065
  16. MOXONIDINE [Concomitant]
     Active Substance: MOXONIDINE
     Indication: HYPOTENSION
     Dosage: 0.3 MG, QD (0-0-1)
     Route: 048
     Dates: start: 2017, end: 201812
  17. DICLOFENAC [Concomitant]
     Active Substance: DICLOFENAC
     Indication: RENAL FAILURE
  18. TRAMABIAN [Concomitant]
     Indication: PAIN
     Dosage: UNK UNK, BID (75/650 / MG / 1-0-1)
     Route: 048
     Dates: start: 20191114
  19. CANDESARTAN. [Concomitant]
     Active Substance: CANDESARTAN
     Indication: HYPERTENSION
     Dosage: 32 MG, QD (1-0-0)
     Route: 048
     Dates: start: 2018
  20. LIDOCAINE. [Concomitant]
     Active Substance: LIDOCAINE
     Indication: PAIN
     Dosage: 700 MG, QHS
     Route: 062
     Dates: end: 201812
  21. DICLOFENAC [Concomitant]
     Active Substance: DICLOFENAC
     Indication: OSTEOARTHRITIS
     Dosage: UNK
     Route: 062
     Dates: start: 20190823
  22. METOPROLOL. [Concomitant]
     Active Substance: METOPROLOL
     Indication: HYPERTENSION
     Dosage: 95 MG, BID (1/2-0-1/2)
     Route: 048
  23. L-THYROXIN [Concomitant]
     Active Substance: LEVOTHYROXINE SODIUM
     Dosage: 112 UG, QD
     Route: 048
     Dates: start: 20200131
  24. DEKRISTOL [Concomitant]
     Active Substance: CHOLECALCIFEROL
     Indication: PROPHYLAXIS
     Dosage: 20000 IE, QMO
     Route: 048
  25. CIPROFLOXACIN. [Concomitant]
     Active Substance: CIPROFLOXACIN
     Indication: URINARY TRACT INFECTION
     Dosage: 500 MG, BID
     Route: 048
     Dates: start: 20180703, end: 20180707

REACTIONS (10)
  - Haematoma [Not Recovered/Not Resolved]
  - Rash macular [Not Recovered/Not Resolved]
  - Hyperhidrosis [Not Recovered/Not Resolved]
  - Contusion [Recovering/Resolving]
  - Fall [Not Recovered/Not Resolved]
  - Erysipelas [Recovered/Resolved]
  - Nasal obstruction [Not Recovered/Not Resolved]
  - Stomatitis [Not Recovered/Not Resolved]
  - Eye pain [Not Recovered/Not Resolved]
  - Chillblains [Not Recovered/Not Resolved]

NARRATIVE: CASE EVENT DATE: 20180605
